FAERS Safety Report 15322727 (Version 1)
Quarter: 2018Q3

REPORT INFORMATION
  Report Type: Report from Study
  Country: BR (occurrence: BR)
  Receive Date: 20180827
  Receipt Date: 20180827
  Transmission Date: 20181010
  Serious: Yes (Life-Threatening)
  Sender: FDA-Public Use
  Company Number: BR-JNJFOC-20180834536

PATIENT
  Sex: Male

DRUGS (3)
  1. INFLIXIMAB, RECOMBINANT [Suspect]
     Active Substance: INFLIXIMAB
     Indication: CROHN^S DISEASE
     Dosage: TOTAL 3 INFUSIONS
     Route: 042
     Dates: start: 201712, end: 201801
  2. AZATHIOPRINE. [Concomitant]
     Active Substance: AZATHIOPRINE
  3. MESACOL MMX [Concomitant]
     Active Substance: MESALAMINE
     Route: 065

REACTIONS (1)
  - Infusion related reaction [Recovered/Resolved]
